FAERS Safety Report 8560946-X (Version None)
Quarter: 2012Q3

REPORT INFORMATION
  Report Type: 
  Country: None (occurrence: None)
  Receive Date: 20120802
  Receipt Date: 20120725
  Transmission Date: 20120928
  Serious: Yes (Other)
  Sender: FDA-Public Use
  Company Number: DE-ELI_LILLY_AND_COMPANY-DE201207007504

PATIENT
  Sex: Female

DRUGS (3)
  1. FORTEO [Suspect]
     Dosage: UNK, QD
     Route: 058
     Dates: start: 20110120
  2. VITAMIN D [Concomitant]
  3. CALCIUM [Concomitant]

REACTIONS (1)
  - ARRHYTHMIA [None]
